FAERS Safety Report 6661537-8 (Version None)
Quarter: 2010Q1

REPORT INFORMATION
  Report Type: 
  Country: None (occurrence: None)
  Receive Date: 20100331
  Receipt Date: 20100319
  Transmission Date: 20100710
  Serious: Yes (Other)
  Sender: FDA-Public Use
  Company Number: JP-PFIZER INC-2010036969

PATIENT
  Sex: Male
  Weight: 41.5 kg

DRUGS (2)
  1. CHAMPIX [Suspect]
     Indication: NICOTINE DEPENDENCE
     Dosage: UNK
     Dates: start: 20091222, end: 20100123
  2. TRIAZOLAM [Concomitant]
     Dates: start: 20100108

REACTIONS (3)
  - ALTERED STATE OF CONSCIOUSNESS [None]
  - HEAD INJURY [None]
  - MALAISE [None]
